FAERS Safety Report 4950648-0 (Version None)
Quarter: 2006Q1

REPORT INFORMATION
  Report Type: 
  Country: None (occurrence: None)
  Receive Date: 20060321
  Receipt Date: 20060321
  Transmission Date: 20060701
  Serious: Yes (Other)
  Sender: FDA-Public Use
  Company Number: None

PATIENT
  Age: 25 Year
  Sex: Female
  Weight: 108.8633 kg

DRUGS (1)
  1. OVRAL [Suspect]
     Indication: ORAL CONTRACEPTION
     Dosage: 1 PILL EVERY AM PO
     Route: 048
     Dates: start: 20040815, end: 20050929

REACTIONS (6)
  - ANXIETY [None]
  - DEPRESSION [None]
  - FEELING ABNORMAL [None]
  - MANIA [None]
  - PANIC ATTACK [None]
  - WEIGHT FLUCTUATION [None]
